FAERS Safety Report 8910682 (Version 1)
Quarter: 2012Q4

REPORT INFORMATION
  Report Type: Spontaneous
  Country: IT (occurrence: None)
  Receive Date: 20121113
  Receipt Date: 20121113
  Transmission Date: 20130627
  Serious: Yes (Hospitalization, Other)
  Sender: FDA-Public Use
  Company Number: 2012AP003646

PATIENT
  Age: 68 Year
  Sex: Male

DRUGS (4)
  1. PERINDOPRIL [Suspect]
     Route: 048
     Dates: start: 20120701, end: 20120930
  2. BISOPROLOL (BISOPROLOL) [Concomitant]
     Route: 048
     Dates: start: 20120701, end: 20120930
  3. COVERSYL (PERINDOPRIL ERBUMINE) [Concomitant]
  4. CONGESCOR (BISOPROLOL) [Concomitant]

REACTIONS (7)
  - Loss of consciousness [None]
  - Drug ineffective [None]
  - Malaise [None]
  - Hypertension [None]
  - Contusion [None]
  - Road traffic accident [None]
  - Head injury [None]
